FAERS Safety Report 4805527-6 (Version None)
Quarter: 2005Q4

REPORT INFORMATION
  Report Type: 
  Country: None (occurrence: None)
  Receive Date: 20051018
  Receipt Date: 20051003
  Transmission Date: 20060501
  Serious: Yes (Hospitalization)
  Sender: FDA-Public Use
  Company Number: 2005-02057

PATIENT
  Age: 77 Year
  Sex: Female
  Weight: 59.9 kg

DRUGS (11)
  1. VELCADE [Suspect]
     Indication: MULTIPLE MYELOMA
     Dosage: INTRAVENOUS
     Route: 042
     Dates: start: 20050919
  2. DECADRON [Suspect]
     Indication: MULTIPLE MYELOMA
     Dosage: INTRAVENOUS
     Route: 042
  3. DECADRON [Concomitant]
  4. PRILOSEC [Concomitant]
  5. FUROSEMIDE [Concomitant]
  6. K-DUR 10 [Concomitant]
  7. ASPIRIN [Concomitant]
  8. MUTIVITAMIN (VITAMINS NOS) [Concomitant]
  9. CALCIUM WITH VITAMIN D (ERGOCALCIDEROL, CALCIUM SODIUM LACTATE, CALCIU [Concomitant]
  10. LIPITOR [Concomitant]
  11. AMBIEN [Concomitant]

REACTIONS (5)
  - DYSPNOEA [None]
  - HYPERTENSION [None]
  - INSOMNIA [None]
  - NEUROPATHY PERIPHERAL [None]
  - OXYGEN SATURATION DECREASED [None]
